FAERS Safety Report 7946326-6 (Version None)
Quarter: 2011Q4

REPORT INFORMATION
  Report Type: 
  Country: None (occurrence: None)
  Receive Date: 20111125
  Receipt Date: 20111110
  Transmission Date: 20120403
  Serious: Yes (Death, Hospitalization)
  Sender: FDA-Public Use
  Company Number: 1000025622

PATIENT
  Age: 41 Year
  Sex: Male

DRUGS (4)
  1. CITALOPRAM HYDROBROMIDE [Suspect]
     Dosage: BETWEEN 21:00PM ON 31-OCT-2011 AND 08:00AM ON 01-NOV-2011
  2. DIAZEPAM [Suspect]
     Dosage: BETWEEN 21:00PM ON 31-OCT-2011 AND 08:00AM ON 01-NOV-2011
  3. CLOZAPINE [Suspect]
     Dosage: BETWEEN 21:00PM ON 31-OCT-2011 AND 08:00AM ON 01-NOV-2011
  4. PROCYCLIDINE HYDROCHLORIDE 2MG TAB [Suspect]
     Dosage: BETWEEN 21:00PM ON 31-OCT-2011 AND 08:00AM ON 01-NOV-2011

REACTIONS (6)
  - BLOOD PRESSURE DECREASED [None]
  - INTENTIONAL OVERDOSE [None]
  - GRAND MAL CONVULSION [None]
  - PULSELESS ELECTRICAL ACTIVITY [None]
  - CARDIAC ARREST [None]
  - CIRCULATORY COLLAPSE [None]
